FAERS Safety Report 14204893 (Version 1)
Quarter: 2017Q4

REPORT INFORMATION
  Report Type: Spontaneous
  Country: AU (occurrence: AU)
  Receive Date: 20171118
  Receipt Date: 20171118
  Transmission Date: 20180321
  Serious: Yes (Disabling, Other)
  Sender: FDA-Public Use
  Company Number: None

PATIENT
  Age: 23 Year
  Sex: Female
  Weight: 50 kg

DRUGS (4)
  1. COD LOVER OIL [Concomitant]
  2. HYDROCORTISONE. [Suspect]
     Active Substance: HYDROCORTISONE
     Indication: ECZEMA
     Route: 061
  3. SILICA [Concomitant]
     Active Substance: SILICON DIOXIDE
  4. VITAMIN B3 [Concomitant]
     Active Substance: NIACIN

REACTIONS (34)
  - Skin burning sensation [None]
  - Pruritus [None]
  - Skin exfoliation [None]
  - Eczema herpeticum [None]
  - Swelling [None]
  - Eye irritation [None]
  - Alopecia [None]
  - Insomnia [None]
  - Dizziness [None]
  - Adrenal disorder [None]
  - Restless legs syndrome [None]
  - Condition aggravated [None]
  - Fatigue [None]
  - Depression [None]
  - Suicidal ideation [None]
  - Hyperaesthesia [None]
  - Paraesthesia [None]
  - Post-traumatic stress disorder [None]
  - Rash generalised [None]
  - Elephantiasis [None]
  - Muscle disorder [None]
  - Drug dependence [None]
  - Bone pain [None]
  - Lymphadenopathy [None]
  - Headache [None]
  - Erythema [None]
  - Body temperature abnormal [None]
  - Therapy cessation [None]
  - Secretion discharge [None]
  - Hypersensitivity [None]
  - Pain of skin [None]
  - Neuralgia [None]
  - Appetite disorder [None]
  - Emotional distress [None]

NARRATIVE: CASE EVENT DATE: 20170917
